FAERS Safety Report 7035643-2 (Version None)
Quarter: 2010Q4

REPORT INFORMATION
  Report Type: 
  Country: None (occurrence: None)
  Receive Date: 20101007
  Receipt Date: 20101007
  Transmission Date: 20110411
  Serious: Yes (Hospitalization)
  Sender: FDA-Public Use
  Company Number: None

PATIENT
  Sex: Male
  Weight: 61.6 kg

DRUGS (2)
  1. CISPLATIN [Suspect]
     Dosage: 130 MG
     Dates: end: 20100917
  2. TAXOTERE [Suspect]
     Dosage: 130 MG
     Dates: end: 20100917

REACTIONS (2)
  - DIARRHOEA [None]
  - MUSCLE SPASMS [None]
